FAERS Safety Report 17670541 (Version 4)
Quarter: 2020Q3

REPORT INFORMATION
  Report Type: Spontaneous
  Country: US (occurrence: US)
  Receive Date: 20200415
  Receipt Date: 20200803
  Transmission Date: 20201102
  Serious: Yes (Hospitalization)
  Sender: FDA-Public Use
  Company Number: US-SHIRE-US202013430

PATIENT
  Age: 61 Year
  Sex: Male
  Weight: 91.17 kg

DRUGS (8)
  1. GATTEX [Suspect]
     Active Substance: TEDUGLUTIDE\WATER
     Indication: SHORT-BOWEL SYNDROME
     Dosage: (0.4500 UNITS UNKNOWN), 1X/DAY:QD
     Route: 058
     Dates: start: 20200128
  2. GATTEX [Suspect]
     Active Substance: TEDUGLUTIDE\WATER
     Indication: SHORT-BOWEL SYNDROME
     Dosage: (0.4500 UNITS UNKNOWN), 1X/DAY:QD
     Route: 058
     Dates: start: 20200128
  3. GATTEX [Suspect]
     Active Substance: TEDUGLUTIDE\WATER
     Indication: SHORT-BOWEL SYNDROME
     Dosage: (0.4500 UNITS UNKNOWN), 1X/DAY:QD
     Route: 058
     Dates: start: 20200128
  4. GATTEX [Suspect]
     Active Substance: TEDUGLUTIDE\WATER
     Indication: SHORT-BOWEL SYNDROME
     Dosage: (0.4500 UNITS UNKNOWN), 1X/DAY:QD
     Route: 058
     Dates: start: 20200128
  5. GATTEX [Suspect]
     Active Substance: TEDUGLUTIDE\WATER
     Dosage: 2.25 MILLIGRAM
     Route: 050
  6. GATTEX [Suspect]
     Active Substance: TEDUGLUTIDE\WATER
     Dosage: 2.25 MILLIGRAM
     Route: 050
  7. GATTEX [Suspect]
     Active Substance: TEDUGLUTIDE\WATER
     Dosage: 2.25 MILLIGRAM
     Route: 050
  8. GATTEX [Suspect]
     Active Substance: TEDUGLUTIDE\WATER
     Dosage: 2.25 MILLIGRAM
     Route: 050

REACTIONS (2)
  - Hospitalisation [Recovered/Resolved]
  - Gastrointestinal stoma output abnormal [Unknown]

NARRATIVE: CASE EVENT DATE: 20200716
